FAERS Safety Report 24886575 (Version 2)
Quarter: 2025Q1

REPORT INFORMATION
  Report Type: Spontaneous
  Country: GB (occurrence: GB)
  Receive Date: 20250126
  Receipt Date: 20250305
  Transmission Date: 20250409
  Serious: Yes (Disabling, Other)
  Sender: TORRENT PHARMA INC.
  Company Number: None

PATIENT
  Age: 30 Year
  Sex: Female

DRUGS (2)
  1. TOPIRAMATE [Suspect]
     Active Substance: TOPIRAMATE
     Indication: Vestibular migraine
     Dosage: 50MG ONCE A DAY AT NIGHT
     Route: 065
  2. PIZOTYLINE [Suspect]
     Active Substance: PIZOTYLINE
     Indication: Vestibular migraine
     Route: 065

REACTIONS (5)
  - Product administration interrupted [Unknown]
  - Migraine [Not Recovered/Not Resolved]
  - Abnormal weight gain [Not Recovered/Not Resolved]
  - Fatigue [Not Recovered/Not Resolved]
  - Pain [Not Recovered/Not Resolved]

NARRATIVE: CASE EVENT DATE: 20241101
